FAERS Safety Report 6383364-1 (Version None)
Quarter: 2009Q4

REPORT INFORMATION
  Report Type: 
  Country: None (occurrence: None)
  Receive Date: 20091001
  Receipt Date: 20090529
  Transmission Date: 20100525
  Serious: Yes (Other)
  Sender: FDA-Public Use
  Company Number: PHEH2009US10798

PATIENT
  Sex: Female

DRUGS (10)
  1. EXFORGE [Suspect]
     Dosage: UNK
  2. KLOR-CON [Suspect]
     Dosage: UNK
  3. RANEXA [Suspect]
     Dosage: UNK
  4. BYSTOLIC [Suspect]
     Dosage: UNK
  5. FUROSEMIDE [Suspect]
     Dosage: UNK
  6. PLAVIX [Suspect]
     Dosage: UNK
  7. DETROL [Suspect]
     Dosage: UNK
  8. BIOTIN [Suspect]
     Dosage: UNK
  9. GLYBURIDE [Suspect]
     Dosage: UNK
  10. METFORMIN HCL [Suspect]
     Dosage: UNK

REACTIONS (6)
  - ANGINA PECTORIS [None]
  - AORTIC VALVE STENOSIS [None]
  - CARDIOMEGALY [None]
  - DIZZINESS [None]
  - FATIGUE [None]
  - HYPERSOMNIA [None]
